FAERS Safety Report 5097833-8 (Version None)
Quarter: 2006Q3

REPORT INFORMATION
  Report Type: 
  Country: None (occurrence: None)
  Receive Date: 20060905
  Receipt Date: 20060818
  Transmission Date: 20061208
  Serious: Yes (Disabling, Other)
  Sender: FDA-Public Use
  Company Number: HQWYE266526OCT05

PATIENT
  Age: 73 Year
  Sex: Female
  Weight: 77.18 kg

DRUGS (4)
  1. EFFEXOR XR [Suspect]
     Indication: DEPRESSION
     Dosage: 150 MG 1X PER 1 DAY, ORAL
     Route: 048
     Dates: start: 20020101, end: 20051001
  2. SYNTHROID [Concomitant]
  3. LORAZEPAM [Concomitant]
  4. NORVASC [Concomitant]

REACTIONS (14)
  - APATHY [None]
  - ASTHENIA [None]
  - COGNITIVE DISORDER [None]
  - CONDITION AGGRAVATED [None]
  - CRYING [None]
  - DRUG INEFFECTIVE [None]
  - IMPAIRED DRIVING ABILITY [None]
  - IMPAIRED WORK ABILITY [None]
  - NERVE INJURY [None]
  - NERVOUSNESS [None]
  - SOCIAL AVOIDANT BEHAVIOUR [None]
  - SOMNOLENCE [None]
  - SUICIDAL IDEATION [None]
  - TREMOR [None]
